FAERS Safety Report 22000148 (Version 3)
Quarter: 2023Q1

REPORT INFORMATION
  Report Type: Spontaneous
  Country: CA (occurrence: CA)
  Receive Date: 20230216
  Receipt Date: 20230321
  Transmission Date: 20230417
  Serious: Yes (Hospitalization)
  Sender: FDA-Public Use
  Company Number: CA-PFIZER INC-202300024622

PATIENT
  Age: 44 Year
  Sex: Male

DRUGS (5)
  1. XELJANZ [Suspect]
     Active Substance: TOFACITINIB CITRATE
     Indication: Colitis ulcerative
     Dosage: 10 MG, 2X/DAY (INDUCTION FOR 8 WEEKS), DISCONTINUED
     Route: 048
  2. ELIQUIS [Concomitant]
     Active Substance: APIXABAN
     Dosage: UNK, 2X/DAY (2.5 PO BID, CHRONIC)
     Route: 048
  3. PREDNISOLONE [Concomitant]
     Active Substance: PREDNISOLONE
     Dosage: UNK, (DECREASING DOSES)
     Route: 048
  4. PREDNISONE [Concomitant]
     Active Substance: PREDNISONE
     Dosage: UNK
  5. SOLU-MEDROL [Concomitant]
     Active Substance: METHYLPREDNISOLONE SODIUM SUCCINATE
     Dosage: UNK
     Route: 042

REACTIONS (2)
  - Malaise [Unknown]
  - Drug ineffective [Unknown]
